FAERS Safety Report 11199569 (Version 2)
Quarter: 2015Q3

REPORT INFORMATION
  Report Type: Spontaneous
  Country: BR (occurrence: BR)
  Receive Date: 20150618
  Receipt Date: 20150820
  Transmission Date: 20151125
  Serious: Yes (Other)
  Sender: FDA-Public Use
  Company Number: BR-ASTRAZENECA-2015SE44708

PATIENT
  Age: 730 Month
  Sex: Female

DRUGS (5)
  1. SUPRELLE [Concomitant]
     Indication: HORMONE REPLACEMENT THERAPY
     Dates: start: 201412
  2. SELOZOK [Suspect]
     Active Substance: METOPROLOL SUCCINATE
     Route: 048
     Dates: start: 201412
  3. ASPIRINA PREVENT [Concomitant]
     Active Substance: ASPIRIN
     Dates: start: 201412
  4. AMIOBAL [Concomitant]
     Dates: start: 201412
  5. ATACAND [Suspect]
     Active Substance: CANDESARTAN CILEXETIL
     Route: 048
     Dates: start: 201412

REACTIONS (2)
  - Fatigue [Recovered/Resolved]
  - Influenza [Not Recovered/Not Resolved]

NARRATIVE: CASE EVENT DATE: 201412
